FAERS Safety Report 9976353 (Version 1)
Quarter: 2014Q1

REPORT INFORMATION
  Report Type: Report from Study
  Country: US (occurrence: US)
  Receive Date: 20140306
  Receipt Date: 20140306
  Transmission Date: 20141002
  Serious: No
  Sender: FDA-Public Use
  Company Number: US-ABBVIE-13P-163-1164632-00

PATIENT
  Age: 26 Year
  Sex: Female
  Weight: 77.18 kg

DRUGS (7)
  1. HUMIRA [Suspect]
     Indication: COLITIS ULCERATIVE
     Route: 058
     Dates: start: 201305, end: 201305
  2. HUMIRA [Suspect]
     Route: 058
     Dates: start: 201305, end: 201305
  3. HUMIRA [Suspect]
     Route: 058
     Dates: start: 201305
  4. IMURAN [Concomitant]
     Indication: COLITIS ULCERATIVE
  5. PROZAC [Concomitant]
     Indication: IRRITABLE BOWEL SYNDROME
  6. AYGESTIN [Concomitant]
     Indication: CONTRACEPTION
  7. AYGESTIN [Concomitant]
     Indication: ENDOMETRIOSIS

REACTIONS (2)
  - Injection site haemorrhage [Recovered/Resolved]
  - Injection site bruising [Not Recovered/Not Resolved]
